FAERS Safety Report 6308971-3 (Version None)
Quarter: 2009Q3

REPORT INFORMATION
  Report Type: 
  Country: None (occurrence: None)
  Receive Date: 20090813
  Receipt Date: 20090806
  Transmission Date: 20100115
  Serious: Yes (Hospitalization, Other)
  Sender: FDA-Public Use
  Company Number: ES-AMGEN-QUU359074

PATIENT
  Age: 81 Year
  Sex: Female

DRUGS (6)
  1. ARANESP [Suspect]
     Indication: RENAL FAILURE CHRONIC
     Route: 058
     Dates: start: 20080101, end: 20090320
  2. ALLOPURINOL [Suspect]
     Route: 048
     Dates: end: 20090320
  3. ALDACTONE [Suspect]
     Route: 048
  4. ATENOLOL [Concomitant]
     Route: 048
  5. FRAGMIN [Concomitant]
     Route: 058
  6. SEGURIL [Concomitant]
     Indication: RENAL FAILURE CHRONIC
     Route: 048

REACTIONS (2)
  - RASH PAPULAR [None]
  - RENAL FAILURE ACUTE [None]
